FAERS Safety Report 9600721 (Version 1)
Quarter: 2013Q4

REPORT INFORMATION
  Report Type: Spontaneous
  Country: US (occurrence: US)
  Receive Date: 20131004
  Receipt Date: 20131004
  Transmission Date: 20140711
  Serious: No
  Sender: FDA-Public Use
  Company Number: US-AMGEN-USASP2013035971

PATIENT
  Age: 57 Year
  Sex: Female
  Weight: 72.56 kg

DRUGS (8)
  1. ENBREL [Suspect]
     Indication: PRODUCT USED FOR UNKNOWN INDICATION
     Dosage: 50 MG, QWK
     Route: 058
  2. ASPIRIN [Concomitant]
     Dosage: 81 MG, UNK, ADULT
  3. LEVOTHYROXIN [Concomitant]
     Dosage: 25 MUG, UNK
  4. ZOLOFT [Concomitant]
     Dosage: 25 MG, UNK
  5. FISH OIL [Concomitant]
     Dosage: UNK
  6. COUMADIN                           /00014802/ [Concomitant]
     Dosage: 1 MG, UNK
  7. FOLIC ACID [Concomitant]
     Dosage: UNK
  8. MULTIVITAMINS, PLAIN [Concomitant]
     Dosage: UNK

REACTIONS (3)
  - Injection site swelling [Unknown]
  - Injection site erythema [Unknown]
  - Injection site pruritus [Unknown]
